FAERS Safety Report 5814732-1 (Version None)
Quarter: 2008Q3

REPORT INFORMATION
  Report Type: 
  Country: None (occurrence: None)
  Receive Date: 20080718
  Receipt Date: 20080522
  Transmission Date: 20090109
  Serious: No
  Sender: FDA-Public Use
  Company Number: US-KINGPHARMUSA00001-K200800597

PATIENT

DRUGS (2)
  1. LEVOXYL [Suspect]
     Dosage: 125 MCG, QD
     Route: 048
     Dates: start: 20080401
  2. FOSAMAX [Concomitant]
     Dosage: UNK, UNK
     Route: 048

REACTIONS (2)
  - ASTHENIA [None]
  - DRUG INEFFECTIVE [None]
